FAERS Safety Report 6731331-8 (Version None)
Quarter: 2010Q2

REPORT INFORMATION
  Report Type: 
  Country: None (occurrence: None)
  Receive Date: 20100517
  Receipt Date: 20100517
  Transmission Date: 20101027
  Serious: Yes (Other)
  Sender: FDA-Public Use
  Company Number: None

PATIENT
  Age: 62 Year
  Sex: Female
  Weight: 56.6996 kg

DRUGS (1)
  1. ADVAIR DISKUS 500/50 [Suspect]
     Indication: BRONCHITIS
     Dosage: 2 PUFFS TWICE A DAY OTHER
     Route: 050
     Dates: start: 20100425, end: 20100427

REACTIONS (3)
  - CONDITION AGGRAVATED [None]
  - MUSCLE SPASMS [None]
  - PLANTAR FASCIITIS [None]
